FAERS Safety Report 25076323 (Version 6)
Quarter: 2025Q2

REPORT INFORMATION
  Report Type: Spontaneous
  Country: US (occurrence: US)
  Receive Date: 20250313
  Receipt Date: 20250506
  Transmission Date: 20250717
  Serious: Yes (Other)
  Sender: SANOFI AVENTIS
  Company Number: US-SA-2025SA074238

PATIENT
  Age: 86 Year
  Sex: Female

DRUGS (2)
  1. DUPIXENT [Suspect]
     Active Substance: DUPILUMAB
     Indication: Pemphigoid
     Dosage: 300 MG, QOW
     Route: 058
     Dates: start: 202501
  2. FUROSEMIDE [Suspect]
     Active Substance: FUROSEMIDE

REACTIONS (10)
  - Pemphigoid [Unknown]
  - Condition aggravated [Unknown]
  - Blister [Unknown]
  - Arthralgia [Unknown]
  - Gait disturbance [Unknown]
  - Visual impairment [Unknown]
  - Eye pain [Unknown]
  - Myalgia [Unknown]
  - Product use in unapproved indication [Unknown]
  - Therapeutic response unexpected [Unknown]

NARRATIVE: CASE EVENT DATE: 20250101
